FAERS Safety Report 6859617-7 (Version None)
Quarter: 2010Q3

REPORT INFORMATION
  Report Type: 
  Country: None (occurrence: None)
  Receive Date: 20100719
  Receipt Date: 20080411
  Transmission Date: 20110219
  Serious: No
  Sender: FDA-Public Use
  Company Number: US-PFIZER INC-2008020741

PATIENT
  Age: 44 Year
  Sex: Female
  Weight: 150 kg

DRUGS (3)
  1. CHANTIX [Suspect]
     Indication: SMOKING CESSATION THERAPY
     Dates: start: 20080101
  2. OPHTHALMOLOGICALS [Suspect]
  3. ORAL CONTRACEPTIVE NOS [Concomitant]

REACTIONS (1)
  - EYE INFECTION [None]
